FAERS Safety Report 17408368 (Version 2)
Quarter: 2020Q1

REPORT INFORMATION
  Report Type: Spontaneous
  Country: BR (occurrence: BR)
  Receive Date: 20200212
  Receipt Date: 20200224
  Transmission Date: 20200409
  Serious: Yes (Disabling, Other)
  Sender: FDA-Public Use
  Company Number: NVSC2020BR037752

PATIENT
  Sex: Female

DRUGS (1)
  1. TRAVATAN BAK-FREE [Suspect]
     Active Substance: TRAVOPROST
     Indication: GLAUCOMA
     Dosage: 1 GTT, QHS
     Route: 065

REACTIONS (3)
  - Retinal detachment [Unknown]
  - Blindness unilateral [Unknown]
  - Visual impairment [Unknown]
